FAERS Safety Report 25335506 (Version 1)
Quarter: 2025Q2

REPORT INFORMATION
  Report Type: Spontaneous
  Country: FR (occurrence: FR)
  Receive Date: 20250520
  Receipt Date: 20250520
  Transmission Date: 20250717
  Serious: Yes (Hospitalization)
  Sender: ACCORD
  Company Number: None

PATIENT
  Age: 55 Year
  Sex: Male

DRUGS (6)
  1. FUROSEMIDE [Suspect]
     Active Substance: FUROSEMIDE
     Indication: Oedema peripheral
     Dosage: 80MG/DAY
     Dates: start: 202409, end: 20250102
  2. ADAGRASIB [Suspect]
     Active Substance: ADAGRASIB
     Indication: Adenocarcinoma of colon
     Dosage: 600MGX2/DAY
     Dates: start: 20240816, end: 20250102
  3. ERBITUX [Suspect]
     Active Substance: CETUXIMAB
     Indication: Adenocarcinoma of colon
     Dosage: 1000MG TOTAL EVERY 2 WEEKS
     Dates: start: 20240816, end: 20241212
  4. ALDACTONE [Suspect]
     Active Substance: SPIRONOLACTONE
     Indication: Oedema peripheral
     Dates: start: 20241212, end: 20241228
  5. COVERAM [Concomitant]
     Active Substance: AMLODIPINE\PERINDOPRIL
  6. DOXYCYCLINE [Concomitant]
     Active Substance: DOXYCYCLINE

REACTIONS (1)
  - Gastric ulcer [Recovering/Resolving]

NARRATIVE: CASE EVENT DATE: 20250103
